FAERS Safety Report 7353898-1 (Version None)
Quarter: 2011Q1

REPORT INFORMATION
  Report Type: 
  Country: None (occurrence: None)
  Receive Date: 20110315
  Receipt Date: 20110309
  Transmission Date: 20110831
  Serious: Yes (Hospitalization)
  Sender: FDA-Public Use
  Company Number: FR-BAXTER-2011BH006118

PATIENT
  Age: 9 Year
  Sex: Male

DRUGS (5)
  1. ACTINOMYCIN D [Suspect]
     Indication: RHABDOMYOSARCOMA
     Route: 065
     Dates: start: 20101101
  2. HOLOXAN BAXTER [Suspect]
     Indication: RHABDOMYOSARCOMA
     Route: 065
     Dates: start: 20101101
  3. AVASTIN [Suspect]
     Indication: RHABDOMYOSARCOMA
     Route: 065
     Dates: start: 20101101
  4. VINCRISTINE SULFATE [Suspect]
     Indication: RHABDOMYOSARCOMA
     Route: 065
     Dates: start: 20101101
  5. DOXORUBICIN HCL [Suspect]
     Indication: RHABDOMYOSARCOMA
     Route: 065
     Dates: start: 20101101

REACTIONS (1)
  - PANCREATITIS [None]
